FAERS Safety Report 17535716 (Version 1)
Quarter: 2020Q1

REPORT INFORMATION
  Report Type: Report from Study
  Country: US (occurrence: US)
  Receive Date: 20200312
  Receipt Date: 20200312
  Transmission Date: 20200409
  Serious: Yes (Other)
  Sender: FDA-Public Use
  Company Number: US-AMGEN-USASL2019058561

PATIENT
  Age: 61 Year
  Sex: Female

DRUGS (2)
  1. REPATHA [Suspect]
     Active Substance: EVOLOCUMAB
     Indication: LOW DENSITY LIPOPROTEIN ABNORMAL
     Dosage: 140 MILLIGRAM, Q2WK
     Route: 058
     Dates: start: 2019, end: 201912
  2. REPATHA [Suspect]
     Active Substance: EVOLOCUMAB
     Indication: TYPE IIA HYPERLIPIDAEMIA

REACTIONS (14)
  - Influenza like illness [Recovered/Resolved]
  - Pain in extremity [Unknown]
  - Injection site bruising [Not Recovered/Not Resolved]
  - Back pain [Not Recovered/Not Resolved]
  - Injection site discomfort [Not Recovered/Not Resolved]
  - Injection site haemorrhage [Unknown]
  - Hemiplegia [Recovering/Resolving]
  - Injection site pain [Unknown]
  - Gait disturbance [Unknown]
  - Sleep disorder due to general medical condition, insomnia type [Unknown]
  - Impaired work ability [Unknown]
  - Muscle disorder [Recovering/Resolving]
  - Musculoskeletal chest pain [Recovering/Resolving]
  - Bone disorder [Recovering/Resolving]

NARRATIVE: CASE EVENT DATE: 2019
